FAERS Safety Report 4985659-2 (Version None)
Quarter: 2006Q2

REPORT INFORMATION
  Report Type: 
  Country: None (occurrence: None)
  Receive Date: 20060428
  Receipt Date: 20050404
  Transmission Date: 20061013
  Serious: No
  Sender: FDA-Public Use
  Company Number: US-GLAXOSMITHKLINE-A0552432A

PATIENT
  Sex: Female

DRUGS (2)
  1. ZOFRAN [Suspect]
     Dosage: 4MG SINGLE DOSE
     Route: 065
     Dates: start: 20041206, end: 20041206
  2. UNKNOWN MEDICATION [Concomitant]
     Dates: start: 20041206

REACTIONS (4)
  - INJECTION SITE DISCOLOURATION [None]
  - INJECTION SITE PAIN [None]
  - MUSCLE TIGHTNESS [None]
  - PAIN IN EXTREMITY [None]
